FAERS Safety Report 10113559 (Version 2)
Quarter: 2015Q1

REPORT INFORMATION
  Report Type: Other
  Country: US (occurrence: US)
  Receive Date: 20140425
  Receipt Date: 20150202
  Transmission Date: 20150720
  Serious: Yes (Death, Hospitalization, Other)
  Sender: FDA-Public Use
  Company Number: US-GSKPPD-2014GSK013394

PATIENT
  Age: 50 Year
  Sex: Male
  Weight: 174.79 kg

DRUGS (5)
  1. CAPOTEN [Concomitant]
     Active Substance: CAPTOPRIL
  2. LASIX [Concomitant]
     Active Substance: FUROSEMIDE
  3. LANOXIN [Concomitant]
     Active Substance: DIGOXIN
  4. AVANDIA [Suspect]
     Active Substance: ROSIGLITAZONE MALEATE
     Indication: DIABETES MELLITUS
     Dosage: AVANDIA WAS NOT LISTED AMONG THE PATIENTS RECORDS REVIEWED
     Route: 048
  5. ALDACTONE [Concomitant]
     Active Substance: SPIRONOLACTONE

REACTIONS (4)
  - Myocardial infarction [Recovered/Resolved]
  - Cardiac failure congestive [Unknown]
  - Coronary artery disease [Fatal]
  - Hypertension [Unknown]

NARRATIVE: CASE EVENT DATE: 20030430
